FAERS Safety Report 9850473 (Version 2)
Quarter: 2014Q1

REPORT INFORMATION
  Report Type: Report from Study
  Country: CA (occurrence: CA)
  Receive Date: 20140128
  Receipt Date: 20140128
  Transmission Date: 20141002
  Serious: Yes (Other)
  Sender: FDA-Public Use
  Company Number: CA-JNJFOC-20130810671

PATIENT
  Age: 27 Year
  Sex: Female
  Weight: 71.5 kg

DRUGS (2)
  1. REMICADE [Suspect]
     Indication: CROHN^S DISEASE
     Route: 042
     Dates: start: 20120125
  2. REMICADE [Suspect]
     Indication: CROHN^S DISEASE
     Route: 042

REACTIONS (8)
  - Uterine contractions during pregnancy [Recovering/Resolving]
  - Premature separation of placenta [Recovering/Resolving]
  - Anaemia of pregnancy [Unknown]
  - Exposure during pregnancy [Unknown]
  - Crohn^s disease [Unknown]
  - Faeces pale [Unknown]
  - Drug ineffective [Unknown]
  - Incontinence [Unknown]
